FAERS Safety Report 8015904-0 (Version None)
Quarter: 2011Q4

REPORT INFORMATION
  Report Type: 
  Country: None (occurrence: None)
  Receive Date: 20111223
  Receipt Date: 20111212
  Transmission Date: 20120403
  Serious: Yes (Hospitalization, Other)
  Sender: FDA-Public Use
  Company Number: 2011P1014292

PATIENT
  Age: 3 Year
  Sex: Female
  Weight: 10.5 kg

DRUGS (5)
  1. PHENYTOIN [Suspect]
     Indication: CONVULSION
     Dosage: 4 ML;Q12H;PO
     Route: 048
  2. PHENOBARBITAL TAB [Suspect]
     Indication: CONVULSION
     Dosage: 6 ML;Q12H;PO
     Route: 048
  3. METHYLPREDNISOLONE ACETATE [Concomitant]
  4. CLOBAZAM (NO PREF. NAME) [Suspect]
     Indication: CONVULSION
     Dosage: 0.75 MG/KG;QD;PO
     Route: 048
  5. ACYCLOVIR [Concomitant]

REACTIONS (3)
  - ENCEPHALITIS VIRAL [None]
  - DRUG INTERACTION [None]
  - CHOREA [None]
